FAERS Safety Report 6371082-5 (Version None)
Quarter: 2009Q3

REPORT INFORMATION
  Report Type: 
  Country: None (occurrence: None)
  Receive Date: 20090923
  Receipt Date: 20090911
  Transmission Date: 20100115
  Serious: Yes (Hospitalization, Other)
  Sender: FDA-Public Use
  Company Number: PHHY2009BR39201

PATIENT
  Age: 70 Year
  Sex: Female

DRUGS (1)
  1. DIOVAN AMLO FIX [Suspect]
     Dosage: 320/10 MG, UNK

REACTIONS (3)
  - CARDIAC FAILURE [None]
  - CARDIAC OPERATION [None]
  - THROMBOSIS [None]
